FAERS Safety Report 19732935 (Version 1)
Quarter: 2021Q3

REPORT INFORMATION
  Report Type: Spontaneous
  Country: US (occurrence: US)
  Receive Date: 20210822
  Receipt Date: 20210822
  Transmission Date: 20211014
  Serious: Yes (Disabling, Other)
  Sender: FDA-Public Use
  Company Number: None

PATIENT
  Age: 40 Year
  Sex: Female
  Weight: 87.75 kg

DRUGS (1)
  1. GILENYA [Suspect]
     Active Substance: FINGOLIMOD HYDROCHLORIDE
     Indication: MULTIPLE SCLEROSIS
     Dates: start: 20140501, end: 20210415

REACTIONS (4)
  - Pregnancy [None]
  - Myelitis transverse [None]
  - Multiple sclerosis [None]
  - Ophthalmoplegia [None]

NARRATIVE: CASE EVENT DATE: 20210717
